FAERS Safety Report 18961981 (Version 4)
Quarter: 2021Q2

REPORT INFORMATION
  Report Type: Report from Study
  Country: JP (occurrence: JP)
  Receive Date: 20210302
  Receipt Date: 20210430
  Transmission Date: 20210717
  Serious: Yes (Death, Other)
  Sender: FDA-Public Use
  Company Number: JP-CELLTRION INC.-2019JP027315

PATIENT

DRUGS (12)
  1. CT?P6 [Suspect]
     Active Substance: INVESTIGATIONAL BIOSIMILARS
     Dosage: 210 MILLIGRAM, EVERY ADMINISTRATION
     Route: 041
     Dates: start: 20190509, end: 20190509
  2. CT?P6 [Suspect]
     Active Substance: INVESTIGATIONAL BIOSIMILARS
     Dosage: 210 MILLIGRAM, EVERY ADMINISTRATION
     Route: 041
     Dates: start: 20190620, end: 20190620
  3. CT?P6 [Suspect]
     Active Substance: INVESTIGATIONAL BIOSIMILARS
     Dosage: 210 MILLIGRAM, EVERY ADMINISTRATION
     Route: 041
     Dates: start: 20190711, end: 20190711
  4. NKS 1 [Suspect]
     Active Substance: GIMERACIL\OTERACIL\TEGAFUR
     Dosage: 80 MILLIGRAM, QD
     Route: 048
     Dates: start: 20190530, end: 20190613
  5. CT?P6 [Suspect]
     Active Substance: INVESTIGATIONAL BIOSIMILARS
     Indication: HER2 POSITIVE GASTRIC CANCER
     Dosage: 300 MILLIGRAM, EVERY ADMINISTRATION
     Route: 041
     Dates: start: 20190418, end: 20190418
  6. NKS 1 [Suspect]
     Active Substance: GIMERACIL\OTERACIL\TEGAFUR
     Dosage: 80 MILLIGRAM, QD
     Route: 048
     Dates: start: 20190801, end: 20190825
  7. CT?P6 [Suspect]
     Active Substance: INVESTIGATIONAL BIOSIMILARS
     Dosage: 210 MILLIGRAM, EVERY ADMINISTRATION
     Route: 041
     Dates: start: 20190530, end: 20190530
  8. NKS 1 [Suspect]
     Active Substance: GIMERACIL\OTERACIL\TEGAFUR
     Indication: HER2 POSITIVE GASTRIC CANCER
     Dosage: 80 MILLIGRAM, QD
     Route: 048
     Dates: start: 20190418, end: 20190502
  9. NKS 1 [Suspect]
     Active Substance: GIMERACIL\OTERACIL\TEGAFUR
     Dosage: 80 MILLIGRAM, QD
     Route: 048
     Dates: start: 20190620, end: 20190704
  10. NKS 1 [Suspect]
     Active Substance: GIMERACIL\OTERACIL\TEGAFUR
     Dosage: 80 MILLIGRAM, QD
     Route: 048
     Dates: start: 20190711, end: 20190725
  11. NKS 1 [Suspect]
     Active Substance: GIMERACIL\OTERACIL\TEGAFUR
     Dosage: 80 MILLIGRAM, QD
     Route: 048
     Dates: start: 20190509, end: 20190523
  12. CT?P6 [Suspect]
     Active Substance: INVESTIGATIONAL BIOSIMILARS
     Dosage: 210 MILLIGRAM, EVERY ADMINISTRATION
     Route: 041
     Dates: start: 20190801, end: 20190801

REACTIONS (4)
  - Malignant neoplasm progression [Fatal]
  - Lacrimation increased [Not Recovered/Not Resolved]
  - Intentional underdose [Unknown]
  - HER2 positive gastric cancer [Fatal]

NARRATIVE: CASE EVENT DATE: 20190509
